FAERS Safety Report 24042640 (Version 1)
Quarter: 2024Q3

REPORT INFORMATION
  Report Type: Spontaneous
  Country: US (occurrence: US)
  Receive Date: 20240702
  Receipt Date: 20240702
  Transmission Date: 20241017
  Serious: No
  Sender: INTRA-CELLULAR THERAPIES
  Company Number: US-INTRA-CELLULAR THERAPIES, INC.-2024ICT00669

PATIENT
  Age: 33 Year
  Sex: Female

DRUGS (6)
  1. CAPLYTA [Suspect]
     Active Substance: LUMATEPERONE
     Indication: Bipolar disorder
     Dosage: 42 MG
     Dates: start: 20240419, end: 20240419
  2. GABAPENTIN [Concomitant]
     Active Substance: GABAPENTIN
  3. CLONAZEPAM [Concomitant]
     Active Substance: CLONAZEPAM
  4. METOPROLOL [Concomitant]
     Active Substance: METOPROLOL
  5. NORCO [Concomitant]
     Active Substance: ACETAMINOPHEN\HYDROCODONE BITARTRATE
  6. GLYCOPYRROLATE [Concomitant]
     Active Substance: GLYCOPYRROLATE

REACTIONS (6)
  - Retching [Unknown]
  - Neck pain [Unknown]
  - Paraesthesia [Unknown]
  - Disorientation [Unknown]
  - Feeling of body temperature change [Unknown]
  - Headache [Unknown]

NARRATIVE: CASE EVENT DATE: 20240401
